FAERS Safety Report 15732968 (Version 1)
Quarter: 2018Q4

REPORT INFORMATION
  Report Type: Report from Study
  Country: US (occurrence: US)
  Receive Date: 20181218
  Receipt Date: 20181218
  Transmission Date: 20190205
  Serious: Yes (Death, Hospitalization)
  Sender: FDA-Public Use
  Company Number: US-ROCHE-2154259

PATIENT
  Age: 65 Year
  Sex: Female
  Weight: 125 kg

DRUGS (2)
  1. ATEZOLIZUMAB. [Suspect]
     Active Substance: ATEZOLIZUMAB
     Indication: BREAST CANCER METASTATIC
     Dosage: ON 21/JUN/2018, SHE RECEIVED CYCLE 2 OF ATEZOLIZUMAB.?ON 05/JUL/2018, SHE RECEIVED HER MOST RECENT D
     Route: 042
  2. CARBOPLATIN. [Suspect]
     Active Substance: CARBOPLATIN
     Indication: BREAST CANCER METASTATIC
     Dosage: ON 21/JUN/2018, SHE RECEIVED CYCLE 2 OF CARBOPLATIN?ON 5/JUL/2018 SHE RECEIVED HER MOST RECENT DOSE
     Route: 042

REACTIONS (3)
  - Thrombosis [Unknown]
  - Intracardiac thrombus [Fatal]
  - Disease progression [Unknown]

NARRATIVE: CASE EVENT DATE: 20180705
